FAERS Safety Report 6730104-X (Version None)
Quarter: 2010Q2

REPORT INFORMATION
  Report Type: 
  Country: None (occurrence: None)
  Receive Date: 20100518
  Receipt Date: 20100507
  Transmission Date: 20101027
  Serious: Yes (Hospitalization)
  Sender: FDA-Public Use
  Company Number: US-PFIZER INC-2006154680

PATIENT
  Sex: Male

DRUGS (8)
  1. SUNITINIB MALATE [Suspect]
     Indication: GASTROINTESTINAL STROMAL TUMOUR
     Dosage: 37.5 MG, 1X/DAY
     Route: 048
     Dates: start: 20051013, end: 20061211
  2. ATENOLOL [Concomitant]
     Route: 048
     Dates: start: 20050531
  3. CLONAZEPAM [Concomitant]
     Route: 048
     Dates: start: 20050531
  4. COLACE [Concomitant]
     Route: 048
     Dates: start: 20060117
  5. ACETAMINOPHEN AND HYDROCODONE BITARTRATE [Concomitant]
     Route: 048
     Dates: start: 20060111
  6. OMEPRAZOLE [Concomitant]
     Route: 048
     Dates: start: 20060117
  7. PROMETHAZINE [Concomitant]
     Route: 048
     Dates: start: 20060117
  8. STALEVO 100 [Concomitant]
     Route: 048
     Dates: start: 20030101

REACTIONS (1)
  - HALLUCINATION [None]
